FAERS Safety Report 14881869 (Version 2)
Quarter: 2018Q2

REPORT INFORMATION
  Report Type: Report from Study
  Country: GB (occurrence: GB)
  Receive Date: 20180511
  Receipt Date: 20180529
  Transmission Date: 20180711
  Serious: Yes (Other)
  Sender: FDA-Public Use
  Company Number: GB-PFIZER INC-2018189927

PATIENT
  Age: 73 Year
  Sex: Female

DRUGS (1)
  1. SUTENT [Suspect]
     Active Substance: SUNITINIB MALATE
     Dosage: 25 MG, 1X/DAY
     Route: 048
     Dates: start: 20180313

REACTIONS (7)
  - Eructation [Unknown]
  - Infected cyst [Recovered/Resolved]
  - Pain in extremity [Recovering/Resolving]
  - Plantar erythema [Recovering/Resolving]
  - Abdominal distension [Unknown]
  - Dyspepsia [Unknown]
  - Feeling hot [Recovering/Resolving]

NARRATIVE: CASE EVENT DATE: 20180504
